FAERS Safety Report 8991112 (Version 1)
Quarter: 2012Q4

REPORT INFORMATION
  Report Type: Spontaneous
  Country: GB (occurrence: None)
  Receive Date: 20121220
  Receipt Date: 20121220
  Transmission Date: 20130627
  Serious: Yes (Hospitalization)
  Sender: FDA-Public Use
  Company Number: GER/UKI/12/0027096

PATIENT
  Age: 84 Year
  Sex: Female

DRUGS (4)
  1. AMLODIPINE (AMLODIPINE) [Suspect]
     Indication: BLOOD PRESSURE
  2. LISINOPRIL (LISINOPRIL) [Suspect]
  3. FOLIC ACID (FOLIC ACID) [Concomitant]
  4. GALFER SYRUP (FERROUS FUMARATE) [Concomitant]

REACTIONS (3)
  - Hypertension [None]
  - Muscle spasms [None]
  - Drug ineffective [None]
